FAERS Safety Report 8077682-9 (Version None)
Quarter: 2012Q1

REPORT INFORMATION
  Report Type: 
  Country: None (occurrence: None)
  Receive Date: 20120127
  Receipt Date: 20120120
  Transmission Date: 20120608
  Serious: Yes (Life-Threatening, Hospitalization)
  Sender: FDA-Public Use
  Company Number: US-CELGENEUS-163-21880-11123487

PATIENT
  Sex: Male
  Weight: 83.99 kg

DRUGS (21)
  1. ACYCLOVIR [Concomitant]
     Indication: PROPHYLAXIS
     Dosage: 200 MILLIGRAM
     Route: 065
  2. RASBURICASE [Concomitant]
     Route: 065
     Dates: start: 20111216, end: 20111216
  3. REVLIMID [Suspect]
     Indication: MULTIPLE MYELOMA
     Dosage: 5 MILLIGRAM
     Route: 048
     Dates: start: 20111101, end: 20111201
  4. FLUID [Concomitant]
     Route: 041
  5. URSODIOL [Concomitant]
     Dosage: 300 MILLIGRAM
     Route: 048
  6. ASPIRIN [Concomitant]
     Dosage: 325 MILLIGRAM
  7. OXYCODONE HCL [Concomitant]
     Dosage: 10 MILLIGRAM
     Route: 048
  8. VELCADE [Concomitant]
     Dosage: 1.3 MILLIGRAM/SQ. METER
     Route: 041
     Dates: start: 20111219
  9. NOVOLOG [Concomitant]
     Dosage: SLIDING SCALE
     Route: 065
  10. MULTI-VITAMINS [Concomitant]
     Route: 065
  11. VELCADE [Concomitant]
     Dosage: 2.3 MILLIGRAM
     Route: 041
  12. OXYCODONE HCL [Concomitant]
     Dosage: 2-3 TABLETS
     Route: 065
  13. LEVEMIR [Concomitant]
     Dosage: 10 UNITS
     Route: 065
  14. DIAZEPAM [Concomitant]
     Dosage: 5 - 10 MG
     Route: 048
  15. TURMERIC [Concomitant]
     Route: 065
  16. GABAPENTIN [Concomitant]
     Dosage: 300 MILLIGRAM
     Route: 048
  17. ATIVAN [Concomitant]
     Indication: NAUSEA
     Route: 065
  18. ATIVAN [Concomitant]
     Indication: VOMITING
  19. URSO FORTE [Concomitant]
     Dosage: 250 MILLIGRAM
     Route: 065
  20. ANTIBIOTICS [Concomitant]
     Route: 065
  21. DEXAMETHASONE [Concomitant]
     Indication: MULTIPLE MYELOMA
     Dosage: 40 MILLIGRAM
     Route: 041
     Dates: start: 20111214, end: 20111217

REACTIONS (6)
  - GASTROINTESTINAL HAEMORRHAGE [None]
  - DEEP VEIN THROMBOSIS [None]
  - PLASMACYTOMA [None]
  - RENAL FAILURE ACUTE [None]
  - ATRIAL FIBRILLATION [None]
  - NO THERAPEUTIC RESPONSE [None]
